FAERS Safety Report 8841854 (Version 1)
Quarter: 2012Q4

REPORT INFORMATION
  Report Type: Spontaneous
  Country: US (occurrence: None)
  Receive Date: 20121015
  Receipt Date: 20121015
  Transmission Date: 20130627
  Serious: Yes (Other)
  Sender: FDA-Public Use
  Company Number: None

PATIENT
  Age: 62 Year
  Sex: Female
  Weight: 111.13 kg

DRUGS (2)
  1. PRADAXA [Suspect]
     Indication: CVA
     Route: 048
     Dates: start: 20120715, end: 20120729
  2. PRADAXA [Suspect]
     Indication: CARDIAC ARRHYTHMIA
     Route: 048
     Dates: start: 20120715, end: 20120729

REACTIONS (5)
  - Oedema [None]
  - Dyspnoea [None]
  - Micturition frequency decreased [None]
  - Malaise [None]
  - Feeling abnormal [None]
